FAERS Safety Report 9335197 (Version 2)
Quarter: 2013Q2

REPORT INFORMATION
  Report Type: Spontaneous
  Country: JP (occurrence: JP)
  Receive Date: 20130606
  Receipt Date: 20130612
  Transmission Date: 20140414
  Serious: Yes (Hospitalization)
  Sender: FDA-Public Use
  Company Number: JP-GLAXOSMITHKLINE-B0896558A

PATIENT
  Age: 79 Year
  Sex: Female

DRUGS (5)
  1. ZINNAT [Suspect]
     Indication: INFECTION PROPHYLAXIS
     Dosage: 250MG PER DAY
     Route: 048
     Dates: start: 20130510, end: 20130510
  2. LORCAM [Concomitant]
     Indication: PAIN PROPHYLAXIS
     Dosage: 4MG PER DAY
     Route: 048
     Dates: start: 20130510, end: 20130510
  3. NORVASC [Concomitant]
     Route: 048
  4. LENDORMIN [Concomitant]
     Route: 048
  5. CRESTOR [Concomitant]
     Route: 048

REACTIONS (15)
  - Depressed level of consciousness [Recovered/Resolved]
  - Shock [Recovered/Resolved]
  - Rash papular [Recovered/Resolved]
  - Dysstasia [Recovered/Resolved]
  - Discomfort [Recovered/Resolved]
  - Vomiting [Recovered/Resolved]
  - Drug hypersensitivity [Recovered/Resolved]
  - Face oedema [Recovered/Resolved]
  - Pharyngeal oedema [Recovered/Resolved]
  - Hypotension [Recovered/Resolved]
  - Dizziness [Recovered/Resolved]
  - Syncope [Recovered/Resolved]
  - Nausea [Recovered/Resolved]
  - Diarrhoea [Recovered/Resolved]
  - Urticaria [Recovered/Resolved]
